FAERS Safety Report 25374039 (Version 2)
Quarter: 2025Q2

REPORT INFORMATION
  Report Type: Report from Study
  Country: US (occurrence: US)
  Receive Date: 20250529
  Receipt Date: 20250620
  Transmission Date: 20250716
  Serious: Yes (Hospitalization, Other)
  Sender: AGIOS PHARMACEUTICALS
  Company Number: US-AGIOS-2504US04235

PATIENT
  Age: 58 Year
  Sex: Male

DRUGS (1)
  1. MITAPIVAT [Suspect]
     Active Substance: MITAPIVAT
     Indication: Pyruvate kinase deficiency anaemia
     Route: 048
     Dates: start: 20220331

REACTIONS (7)
  - Staphylococcal sepsis [Not Recovered/Not Resolved]
  - Medical device site joint infection [Not Recovered/Not Resolved]
  - Unevaluable event [Unknown]
  - Osteomyelitis [Recovering/Resolving]
  - Product dose omission issue [Not Recovered/Not Resolved]
  - Product use issue [Unknown]
  - Haemoglobin decreased [Recovering/Resolving]

NARRATIVE: CASE EVENT DATE: 20250509
